FAERS Safety Report 13072161 (Version 2)
Quarter: 2017Q1

REPORT INFORMATION
  Report Type: Spontaneous
  Country: DK (occurrence: DK)
  Receive Date: 20161229
  Receipt Date: 20170127
  Transmission Date: 20170428
  Serious: Yes (Other)
  Sender: FDA-Public Use
  Company Number: PHHY2016DK176972

PATIENT
  Age: 64 Year
  Sex: Female

DRUGS (6)
  1. HEXAMYCIN [Suspect]
     Active Substance: GENTAMICIN
     Indication: INFECTION
     Dosage: 400 MG, UNK
     Route: 065
     Dates: start: 20161220
  2. HEXAMYCIN [Suspect]
     Active Substance: GENTAMICIN
     Dosage: 5MG/KG OVER 30 SECONDS
     Route: 065
  3. PROPOFOL. [Concomitant]
     Active Substance: PROPOFOL
     Indication: ANAESTHESIA
     Route: 065
  4. CEFUROXIM [Concomitant]
     Active Substance: CEFUROXIME
     Indication: INFECTION PROPHYLAXIS
     Route: 065
  5. REMIFENTANIL [Concomitant]
     Active Substance: REMIFENTANIL
     Indication: ANAESTHESIA
     Route: 065
  6. FENTANYL. [Concomitant]
     Active Substance: FENTANYL
     Indication: ANAESTHESIA
     Route: 065

REACTIONS (1)
  - Blood pressure decreased [Unknown]

NARRATIVE: CASE EVENT DATE: 20161220
